FAERS Safety Report 7257840-3 (Version None)
Quarter: 2011Q1

REPORT INFORMATION
  Report Type: 
  Country: None (occurrence: None)
  Receive Date: 20110129
  Receipt Date: 20100511
  Transmission Date: 20110831
  Serious: No
  Sender: FDA-Public Use
  Company Number: US-ABBOTT-10P-163-0645066-00

PATIENT
  Sex: Male

DRUGS (5)
  1. TAC OINTMENT [Concomitant]
     Indication: PSORIASIS
  2. HUMIRA [Suspect]
     Indication: PSORIASIS
     Dates: start: 20100422, end: 20100501
  3. FOLIC ACID [Concomitant]
     Indication: PSORIASIS
  4. WESTCORT [Concomitant]
     Indication: PSORIASIS
  5. METHOTREXATE [Concomitant]
     Indication: PSORIASIS
     Dates: end: 20100504

REACTIONS (1)
  - OEDEMA PERIPHERAL [None]
